FAERS Safety Report 15367094 (Version 2)
Quarter: 2018Q3

REPORT INFORMATION
  Report Type: Spontaneous
  Country: SK (occurrence: SK)
  Receive Date: 20180910
  Receipt Date: 20180910
  Transmission Date: 20181010
  Serious: Yes (Hospitalization)
  Sender: FDA-Public Use
  Company Number: PHHY2018SK091398

PATIENT
  Age: 57 Year
  Sex: Male

DRUGS (1)
  1. CICLOSPORIN [Suspect]
     Active Substance: CYCLOSPORINE
     Indication: GRANULOMA ANNULARE
     Dosage: 200 MG, REPEATED DAILY INTERMITTENT
     Route: 065

REACTIONS (1)
  - Granuloma annulare [Unknown]
